FAERS Safety Report 6841858-6 (Version None)
Quarter: 2010Q3

REPORT INFORMATION
  Report Type: 
  Country: None (occurrence: None)
  Receive Date: 20100709
  Receipt Date: 20100629
  Transmission Date: 20110219
  Serious: Yes (Other)
  Sender: FDA-Public Use
  Company Number: RB-1702-2008

PATIENT
  Age: 40 Year
  Sex: Female

DRUGS (8)
  1. SUBOXONE [Suspect]
     Indication: PRODUCT USED FOR UNKNOWN INDICATION
     Dosage: 4 MG; SUBLINGUAL
     Route: 060
     Dates: start: 20080521
  2. SUBUTEX [Suspect]
     Indication: PRODUCT USED FOR UNKNOWN INDICATION
  3. MEPROBAMATE [Suspect]
     Indication: ANXIETY
     Dosage: 4 TABLETS TAKEN ONCE ORAL, 400 MG QID, ORAL
     Route: 048
     Dates: start: 20080527, end: 20080527
  4. MEPROBAMATE [Suspect]
     Indication: ANXIETY
     Dosage: 4 TABLETS TAKEN ONCE ORAL, 400 MG QID, ORAL
     Route: 048
     Dates: start: 19980101, end: 20080528
  5. OXAZEPAM [Suspect]
     Indication: ANXIETY
     Dosage: 4 TABLETS TAKEN ONCE ORAL, 50 MG, QID, ORAL
     Route: 048
     Dates: start: 20080527, end: 20080527
  6. OXAZEPAM [Suspect]
     Indication: ANXIETY
     Dosage: 4 TABLETS TAKEN ONCE ORAL, 50 MG, QID, ORAL
     Route: 048
     Dates: start: 19980101
  7. SERESTA [Concomitant]
  8. ZOLPIDEM [Concomitant]

REACTIONS (4)
  - INCORRECT DOSE ADMINISTERED [None]
  - MARITAL PROBLEM [None]
  - SKIN LACERATION [None]
  - SUICIDE ATTEMPT [None]
